FAERS Safety Report 18941280 (Version 1)
Quarter: 2021Q1

REPORT INFORMATION
  Report Type: Spontaneous
  Country: US (occurrence: US)
  Receive Date: 20210225
  Receipt Date: 20210225
  Transmission Date: 20210420
  Serious: No
  Sender: FDA-Public Use
  Company Number: US-BIOVITRUM-2021US1721

PATIENT
  Sex: Male
  Weight: 8.43 kg

DRUGS (1)
  1. SYNAGIS [Suspect]
     Active Substance: PALIVIZUMAB
     Indication: GASTROINTESTINAL MALFORMATION
     Route: 030

REACTIONS (2)
  - Weight decreased [Not Recovered/Not Resolved]
  - Off label use [Unknown]
